FAERS Safety Report 5201324-0 (Version None)
Quarter: 2006Q4

REPORT INFORMATION
  Report Type: 
  Country: None (occurrence: None)
  Receive Date: 20061016
  Receipt Date: 20060713
  Transmission Date: 20070319
  Serious: No
  Sender: FDA-Public Use
  Company Number: 2006SP002712

PATIENT
  Age: 37 Year
  Sex: Female
  Weight: 43.0917 kg

DRUGS (1)
  1. LUNESTA [Suspect]
     Indication: INSOMNIA
     Dosage: 1X ORAL
     Route: 048
     Dates: start: 20060701, end: 20060701

REACTIONS (1)
  - DYSGEUSIA [None]
